FAERS Safety Report 13406337 (Version 1)
Quarter: 2017Q2

REPORT INFORMATION
  Report Type: Spontaneous
  Country: FR (occurrence: FR)
  Receive Date: 20170405
  Receipt Date: 20170405
  Transmission Date: 20170830
  Serious: Yes (Hospitalization, Other)
  Sender: FDA-Public Use
  Company Number: FR-ASTRAZENECA-2017SE34232

PATIENT
  Age: 32 Year
  Sex: Male

DRUGS (11)
  1. PROCORALAN [Suspect]
     Active Substance: IVABRADINE
     Indication: TACHYCARDIA
     Route: 048
     Dates: start: 20170211
  2. SINGULAIR [Suspect]
     Active Substance: MONTELUKAST SODIUM
     Indication: ASTHMA
     Route: 048
     Dates: start: 201701, end: 20170221
  3. VENTOLINE [Suspect]
     Active Substance: ALBUTEROL
     Indication: ASTHMA
     Dosage: DOSE UNKNOWN
     Route: 055
  4. ISOPTINE [Suspect]
     Active Substance: VERAPAMIL HYDROCHLORIDE
     Indication: TACHYCARDIA
     Route: 048
     Dates: start: 20170104, end: 20170121
  5. BRICANYL [Suspect]
     Active Substance: TERBUTALINE SULFATE
     Indication: ASTHMA
     Dosage: DOSE UNKNOWN
     Route: 055
  6. SPIRIVA [Suspect]
     Active Substance: TIOTROPIUM BROMIDE MONOHYDRATE
     Indication: ASTHMA
     Route: 055
  7. SYMBICORT [Suspect]
     Active Substance: BUDESONIDE\FORMOTEROL FUMARATE DIHYDRATE
     Indication: ASTHMA
     Dosage: 400/12 MCG/DOSE  UNKNOWN
     Route: 055
  8. ANAPEN (EPINEPHRINE) [Suspect]
     Active Substance: EPINEPHRINE
     Indication: ASTHMA
     Dosage: NON AZ AS NEEDED
     Route: 058
  9. ISOPTINE [Suspect]
     Active Substance: VERAPAMIL HYDROCHLORIDE
     Indication: TACHYCARDIA
     Route: 048
     Dates: start: 20170214
  10. ISOPTINE [Suspect]
     Active Substance: VERAPAMIL HYDROCHLORIDE
     Indication: TACHYCARDIA
     Route: 048
     Dates: start: 20161230, end: 20170104
  11. PROCORALAN [Suspect]
     Active Substance: IVABRADINE
     Indication: TACHYCARDIA
     Route: 048
     Dates: start: 20170121, end: 20170211

REACTIONS (18)
  - Hypertension [Not Recovered/Not Resolved]
  - Gingival bleeding [Unknown]
  - Chest pain [Unknown]
  - Condition aggravated [Not Recovered/Not Resolved]
  - Hypoacusis [Unknown]
  - Tremor [Unknown]
  - Rash maculo-papular [Unknown]
  - Motor dysfunction [Unknown]
  - Sinus tachycardia [Not Recovered/Not Resolved]
  - Palpable purpura [Unknown]
  - Ear haemorrhage [Unknown]
  - Haematoma [Not Recovered/Not Resolved]
  - Bleeding time prolonged [Unknown]
  - Loss of consciousness [Unknown]
  - Visual acuity reduced [Unknown]
  - Contusion [Unknown]
  - Scar [Unknown]
  - Haematuria [Unknown]

NARRATIVE: CASE EVENT DATE: 20160916
